FAERS Safety Report 8824660 (Version 1)
Quarter: 2012Q4

REPORT INFORMATION
  Report Type: 
  Country: CO (occurrence: CO)
  Receive Date: 20121004
  Receipt Date: 20121004
  Transmission Date: 20130627
  Serious: Yes (Other)
  Sender: FDA-Public Use
  Company Number: PHHY2012CO086522

PATIENT
  Sex: Female

DRUGS (2)
  1. CERTICAN [Suspect]
     Dosage: UNK
     Route: 048
  2. CERTICAN [Suspect]
     Route: 048

REACTIONS (2)
  - Renal disorder [Unknown]
  - Proteinuria [Unknown]
